FAERS Safety Report 14034291 (Version 3)
Quarter: 2017Q4

REPORT INFORMATION
  Report Type: Report from Study
  Country: None (occurrence: BR)
  Receive Date: 20171003
  Receipt Date: 20171110
  Transmission Date: 20180321
  Serious: Yes (Death, Hospitalization, Other)
  Sender: FDA-Public Use
  Company Number: BR-ABBVIE-17P-020-2114439-00

PATIENT
  Age: 73 Year
  Sex: Female
  Weight: 65 kg

DRUGS (7)
  1. VENETOCLAX. [Suspect]
     Active Substance: VENETOCLAX
     Indication: ACUTE LYMPHOCYTIC LEUKAEMIA REFRACTORY
     Route: 048
     Dates: start: 20170614, end: 20170925
  2. LINAGLIPTINE [Concomitant]
     Active Substance: LINAGLIPTIN
     Indication: TYPE 2 DIABETES MELLITUS
  3. ACICLOVIR [Concomitant]
     Active Substance: ACYCLOVIR
     Indication: PROPHYLAXIS
  4. CARVEDILOL. [Concomitant]
     Active Substance: CARVEDILOL
     Indication: CARDIAC DYSFUNCTION
  5. IVABRADINE [Concomitant]
     Active Substance: IVABRADINE
     Indication: CARDIAC DYSFUNCTION
  6. HYDRALAZINE [Concomitant]
     Active Substance: HYDRALAZINE HYDROCHLORIDE
     Indication: CARDIAC DYSFUNCTION
  7. VENLAFAXIN [Concomitant]
     Active Substance: VENLAFAXINE HYDROCHLORIDE
     Indication: DEPRESSION

REACTIONS (4)
  - Adverse event [Fatal]
  - Pulmonary hypertension [Not Recovered/Not Resolved]
  - Cholecystitis acute [Fatal]
  - Sepsis [Fatal]

NARRATIVE: CASE EVENT DATE: 20170925
